FAERS Safety Report 12723706 (Version 2)
Quarter: 2016Q3

REPORT INFORMATION
  Report Type: Report from Study
  Country: MX (occurrence: MX)
  Receive Date: 20160908
  Receipt Date: 20160912
  Transmission Date: 20161109
  Serious: Yes (Other)
  Sender: FDA-Public Use
  Company Number: PHHY2016MX122368

PATIENT
  Sex: Female

DRUGS (1)
  1. EXFORGE HCT [Suspect]
     Active Substance: AMLODIPINE BESYLATE\HYDROCHLOROTHIAZIDE\VALSARTAN
     Indication: BLOOD GLUCOSE ABNORMAL
     Dosage: 1 DF (AMLODIPINE 10 MG, HYDROCHLOROTHIAZIDE 25 MG, VALSARTAN 320 MG), QD (2 YEARS AGO)
     Route: 065

REACTIONS (4)
  - Product use issue [Not Recovered/Not Resolved]
  - Blood pressure increased [Recovering/Resolving]
  - Vision blurred [Unknown]
  - Cataract [Unknown]
